FAERS Safety Report 7902470-0 (Version None)
Quarter: 2011Q4

REPORT INFORMATION
  Report Type: 
  Country: None (occurrence: None)
  Receive Date: 20111108
  Receipt Date: 20111102
  Transmission Date: 20120403
  Serious: No
  Sender: FDA-Public Use
  Company Number: US-B.I. PHARMACEUTICALS,INC./RIDGEFIELD-2011-BP-24111BP

PATIENT
  Sex: Male

DRUGS (6)
  1. METOPROLOL [Concomitant]
     Indication: HYPERTENSION
  2. ASMANEX TWISTHALER [Concomitant]
     Indication: EMPHYSEMA
  3. SPIRIVA [Suspect]
     Indication: EMPHYSEMA
     Dosage: 18 MCG
     Route: 055
     Dates: start: 20110812
  4. SIMVASTATIN [Concomitant]
     Indication: BLOOD CHOLESTEROL INCREASED
  5. AMLODIPINE [Concomitant]
     Indication: HYPERTENSION
  6. OMEPRAZOLE [Concomitant]
     Indication: GASTROOESOPHAGEAL REFLUX DISEASE

REACTIONS (4)
  - DRUG INEFFECTIVE [None]
  - COUGH [None]
  - DRY MOUTH [None]
  - CONSTIPATION [None]
